FAERS Safety Report 6987445-0 (Version None)
Quarter: 2010Q3

REPORT INFORMATION
  Report Type: 
  Country: None (occurrence: None)
  Receive Date: 20100916
  Receipt Date: 20100906
  Transmission Date: 20110219
  Serious: Yes (Hospitalization, Other)
  Sender: FDA-Public Use
  Company Number: PHFR2010GB03452

PATIENT
  Sex: Female

DRUGS (2)
  1. CLOZARIL [Suspect]
     Indication: SCHIZOPHRENIA
     Dosage: UNK
     Route: 048
     Dates: start: 20100106
  2. CLOZARIL [Suspect]
     Dosage: 12.5 MG
     Route: 048

REACTIONS (3)
  - DRUG DOSE OMISSION [None]
  - SCHIZOPHRENIA [None]
  - VOMITING [None]
